FAERS Safety Report 21028636 (Version 1)
Quarter: 2022Q2

REPORT INFORMATION
  Report Type: Spontaneous
  Country: CO (occurrence: CO)
  Receive Date: 20220630
  Receipt Date: 20220630
  Transmission Date: 20220720
  Serious: Yes (Other)
  Sender: FDA-Public Use
  Company Number: CO-AMGEN-COLSP2022107972

PATIENT
  Age: 40 Year
  Sex: Male
  Weight: 48 kg

DRUGS (4)
  1. MVASI [Suspect]
     Active Substance: BEVACIZUMAB-AWWB
     Indication: Renal cell carcinoma
     Dosage: UNK
     Route: 042
     Dates: start: 202112
  2. MVASI [Suspect]
     Active Substance: BEVACIZUMAB-AWWB
     Dosage: 486 MILLIGRAM, QD
     Route: 042
     Dates: start: 20220105
  3. ERLOTINIB [Concomitant]
     Active Substance: ERLOTINIB
     Indication: Renal cell carcinoma
     Dosage: UNK
     Route: 048
     Dates: start: 202112
  4. ERLOTINIB [Concomitant]
     Active Substance: ERLOTINIB
     Dosage: 150 MILLIGRAM, QD
     Route: 048
     Dates: start: 20220105

REACTIONS (5)
  - Spinal cord injury cervical [Not Recovered/Not Resolved]
  - Therapy partial responder [Unknown]
  - Xeroderma [Unknown]
  - Abdominal pain [Recovering/Resolving]
  - Diarrhoea [Recovering/Resolving]

NARRATIVE: CASE EVENT DATE: 20220609
